FAERS Safety Report 5526115-2 (Version None)
Quarter: 2007Q4

REPORT INFORMATION
  Report Type: 
  Country: None (occurrence: None)
  Receive Date: 20071120
  Receipt Date: 20071105
  Transmission Date: 20080405
  Serious: Yes (Hospitalization)
  Sender: FDA-Public Use
  Company Number: 2007S1010420

PATIENT
  Age: 71 Year
  Sex: Female

DRUGS (2)
  1. WARFARIN SODIUM [Suspect]
     Indication: ANTICOAGULANT THERAPY
  2. PENICILLIN [Suspect]
     Indication: RESPIRATORY TRACT INFECTION

REACTIONS (7)
  - ACQUIRED HAEMOPHILIA [None]
  - ACTIVATED PARTIAL THROMBOPLASTIN TIME PROLONGED [None]
  - FACTOR VIII INHIBITION [None]
  - RESPIRATORY TRACT INFECTION [None]
  - SKIN ULCER [None]
  - SKIN ULCER HAEMORRHAGE [None]
  - VASCULAR INSUFFICIENCY [None]
